FAERS Safety Report 13004990 (Version 5)
Quarter: 2017Q2

REPORT INFORMATION
  Report Type: Spontaneous
  Country: US (occurrence: US)
  Receive Date: 20161207
  Receipt Date: 20170522
  Transmission Date: 20170830
  Serious: No
  Sender: FDA-Public Use
  Company Number: US-PFIZER INC-2016557343

PATIENT
  Age: 59 Year
  Sex: Female
  Weight: 102.4 kg

DRUGS (5)
  1. IBRANCE [Suspect]
     Active Substance: PALBOCICLIB
     Dosage: 125 MG, CYCLIC (DAY 1-21 Q 28 DAYS)
     Route: 048
  2. IBRANCE [Suspect]
     Active Substance: PALBOCICLIB
     Indication: BREAST CANCER METASTATIC
     Dosage: 125 MG, CYCLIC (DAY 1-21 Q 28 DAYS)
     Dates: start: 20161102
  3. IBRANCE [Suspect]
     Active Substance: PALBOCICLIB
     Dosage: 125 MG, CYCLIC(DAY 1- 21 Q 28 DAYS)
     Route: 048
     Dates: start: 20161102
  4. IBRANCE [Suspect]
     Active Substance: PALBOCICLIB
     Dosage: 125 MG, CYCLIC (DAY 1-21 Q 28 DAYS)
     Route: 048
  5. IBRANCE [Suspect]
     Active Substance: PALBOCICLIB
     Dosage: 125 MG, CYCLIC(DAY 1- 21 Q 28 DAYS)
     Route: 048

REACTIONS (18)
  - Hot flush [Unknown]
  - Breast atrophy [Unknown]
  - Fatigue [Not Recovered/Not Resolved]
  - Feeling cold [Unknown]
  - Abdominal discomfort [Not Recovered/Not Resolved]
  - Nausea [Unknown]
  - Alopecia [Unknown]
  - Weight decreased [Unknown]
  - Chapped lips [Recovered/Resolved]
  - Tooth disorder [Unknown]
  - Sinus disorder [Not Recovered/Not Resolved]
  - Lip haemorrhage [Recovered/Resolved]
  - Arthralgia [Unknown]
  - Toothache [Unknown]
  - Lip dry [Recovered/Resolved]
  - Back pain [Unknown]
  - White blood cell count decreased [Unknown]
  - Red blood cell count decreased [Unknown]
